FAERS Safety Report 17120664 (Version 2)
Quarter: 2025Q3

REPORT INFORMATION
  Report Type: Spontaneous
  Country: US (occurrence: US)
  Receive Date: 20191206
  Receipt Date: 20250805
  Transmission Date: 20251020
  Serious: Yes (Death)
  Sender: AUROBINDO
  Company Number: US-MYLANLABS-2019M1119632

PATIENT
  Age: 20 Year
  Sex: Male

DRUGS (6)
  1. BUPROPION HYDROCHLORIDE [Suspect]
     Active Substance: BUPROPION HYDROCHLORIDE
     Indication: Product used for unknown indication
     Route: 065
  2. FLUOXETINE [Suspect]
     Active Substance: FLUOXETINE HYDROCHLORIDE
     Indication: Product used for unknown indication
     Route: 065
  3. LOPERAMIDE [Suspect]
     Active Substance: LOPERAMIDE
     Indication: Product used for unknown indication
     Route: 065
  4. LOPERAMIDE [Suspect]
     Active Substance: LOPERAMIDE
     Route: 065
  5. DEXTROMETHORPHAN [Suspect]
     Active Substance: DEXTROMETHORPHAN
     Indication: Product used for unknown indication
     Route: 065
  6. SEPROXETINE [Suspect]
     Active Substance: SEPROXETINE
     Indication: Product used for unknown indication
     Route: 065

REACTIONS (4)
  - Drug abuse [Fatal]
  - Overdose [Fatal]
  - Toxicity to various agents [Fatal]
  - Accident [Fatal]
